FAERS Safety Report 6140505-9 (Version None)
Quarter: 2009Q1

REPORT INFORMATION
  Report Type: 
  Country: None (occurrence: None)
  Receive Date: 20090331
  Receipt Date: 20090322
  Transmission Date: 20090719
  Serious: Yes (Other)
  Sender: FDA-Public Use
  Company Number: CHPA2009US07271

PATIENT
  Age: 4 Year
  Sex: Male
  Weight: 15.9 kg

DRUGS (1)
  1. TRIAMINIC NIGHT TIME COLD + COUGH (NCH) (DIPHENHYDRAMINE, PHENYLPHRINE [Suspect]
     Indication: NASAL CONGESTION
     Dosage: 1 TSP, ONCE/SINGLE, ORAL, ORAL
     Route: 048
     Dates: start: 20090321, end: 20090321

REACTIONS (4)
  - ACCIDENTAL DRUG INTAKE BY CHILD [None]
  - ACCIDENTAL OVERDOSE [None]
  - HALLUCINATION [None]
  - INCORRECT DOSE ADMINISTERED [None]
